FAERS Safety Report 8130907-3 (Version None)
Quarter: 2012Q1

REPORT INFORMATION
  Report Type: 
  Country: None (occurrence: None)
  Receive Date: 20120213
  Receipt Date: 20120207
  Transmission Date: 20120608
  Serious: No
  Sender: FDA-Public Use
  Company Number: US-PFIZER INC-2012033317

PATIENT
  Age: 58 Year
  Sex: Female
  Weight: 83.447 kg

DRUGS (4)
  1. POTASSIUM PENICILLIN G [Suspect]
     Dosage: UNK
  2. PERCOCET [Suspect]
     Dosage: UNK
  3. PERCODAN-DEMI [Suspect]
     Dosage: UNK
  4. NEOSPORIN [Suspect]
     Dosage: UNK

REACTIONS (1)
  - DRUG HYPERSENSITIVITY [None]
